FAERS Safety Report 22153296 (Version 2)
Quarter: 2023Q2

REPORT INFORMATION
  Report Type: Spontaneous
  Country: US (occurrence: None)
  Receive Date: 20230329
  Receipt Date: 20230523
  Transmission Date: 20230721
  Serious: No
  Sender: FDA-Public Use
  Company Number: 2023A071674

PATIENT
  Sex: Female
  Weight: 53.5 kg

DRUGS (1)
  1. BREZTRI [Suspect]
     Active Substance: BUDESONIDE\FORMOTEROL\GLYCOPYRROLATE
     Indication: Chronic obstructive pulmonary disease
     Dosage: 160UG/MG TWO TIMES A DAY
     Route: 055

REACTIONS (3)
  - Time perception altered [Unknown]
  - Incorrect dose administered by product [Unknown]
  - Device malfunction [Unknown]
